FAERS Safety Report 10915193 (Version 1)
Quarter: 2015Q1

REPORT INFORMATION
  Report Type: Spontaneous
  Country: FR (occurrence: FR)
  Receive Date: 20150316
  Receipt Date: 20150316
  Transmission Date: 20150721
  Serious: Yes (Hospitalization)
  Sender: FDA-Public Use
  Company Number: FR-ROCHE-1550608

PATIENT
  Age: 80 Year
  Sex: Male

DRUGS (7)
  1. AUGMENTIN [Concomitant]
     Active Substance: AMOXICILLIN\CLAVULANATE POTASSIUM
     Route: 065
  2. RIVOTRIL [Suspect]
     Active Substance: CLONAZEPAM
     Indication: PRODUCT USED FOR UNKNOWN INDICATION
     Dosage: 5 DROPS IN MIDDAY, 20 DROPS IN THE EVENING
     Route: 065
  3. BROMAZEPAM [Suspect]
     Active Substance: BROMAZEPAM
     Indication: PRODUCT USED FOR UNKNOWN INDICATION
     Dosage: 1/2 IN THE EVENING
     Route: 065
  4. AMIODARONE [Concomitant]
     Active Substance: AMIODARONE
     Route: 065
  5. OXYNORM [Suspect]
     Active Substance: OXYCODONE HYDROCHLORIDE
     Indication: PRODUCT USED FOR UNKNOWN INDICATION
     Route: 065
  6. MOPRAL [Concomitant]
     Active Substance: OMEPRAZOLE SODIUM
     Route: 065
  7. KARDEGIC [Concomitant]
     Active Substance: ASPIRIN LYSINE
     Route: 065

REACTIONS (2)
  - Accidental overdose [Recovered/Resolved]
  - Acute respiratory failure [Recovered/Resolved]

NARRATIVE: CASE EVENT DATE: 20150117
